FAERS Safety Report 7556341-2 (Version None)
Quarter: 2011Q2

REPORT INFORMATION
  Report Type: 
  Country: None (occurrence: None)
  Receive Date: 20110615
  Receipt Date: 20110615
  Transmission Date: 20111010
  Serious: No
  Sender: FDA-Public Use
  Company Number: None

PATIENT
  Age: 48 Year
  Sex: Female
  Weight: 53.5244 kg

DRUGS (1)
  1. BONIVA [Suspect]
     Indication: OSTEOPENIA
     Dosage: 150MG MONTHLY PO
     Route: 048
     Dates: start: 20110406, end: 20110406

REACTIONS (4)
  - MIDDLE INSOMNIA [None]
  - BONE CANCER METASTATIC [None]
  - ARTHRALGIA [None]
  - MOVEMENT DISORDER [None]
